FAERS Safety Report 10203489 (Version 1)
Quarter: 2014Q2

REPORT INFORMATION
  Report Type: Spontaneous
  Country: FR (occurrence: None)
  Receive Date: 20140523
  Receipt Date: 20140523
  Transmission Date: 20141212
  Serious: Yes (Other)
  Sender: FDA-Public Use
  Company Number: FK201401873

PATIENT
  Age: 80 Year
  Sex: Female

DRUGS (8)
  1. PROPOFOL FRESENIUS (NOT SPECIFIED) (PROPOFOL) (PROPOFOL) [Suspect]
     Indication: GENERAL ANAESTHESIA
     Dosage: 700 MG, 1 IN 1 D, INTRAVENOUS (NOT OTHERWISE SPECIFIED)?
     Route: 042
     Dates: start: 20140326, end: 20140326
  2. ROPIVACAINE [Suspect]
     Indication: ANALGESIC THERAPY
     Route: 053
     Dates: start: 20140326, end: 20140326
  3. BLEU PATENTE V SODIQUE [Suspect]
     Indication: PRODUCT USED FOR UNKNOWN INDICATION
     Dosage: 2.5 %, 1 IN 1 D, INTRAVENOUS (NOT OTHERWISE SPECIFIED)?
     Route: 042
  4. BETADINE DERMIQUE [Suspect]
     Indication: INFECTION PROPHYLAXIS
     Dates: start: 20140326, end: 20140326
  5. SUFENTANYL [Suspect]
     Indication: GENERAL ANAESTHESIA
     Dosage: 40 UG, 1 IN 1 D, INTRAVENOUS (NOT OTHERWISE SPECIFIED)?
     Route: 042
     Dates: start: 20140326, end: 20140326
  6. PARACETAMOL [Suspect]
     Indication: PRODUCT USED FOR UNKNOWN INDICATION
     Route: 041
     Dates: start: 20140326, end: 20140326
  7. CONTRAMAL [Suspect]
     Indication: PRODUCT USED FOR UNKNOWN INDICATION
     Dates: start: 20140326, end: 20140326
  8. PROFENID [Suspect]
     Indication: PRODUCT USED FOR UNKNOWN INDICATION
     Dates: start: 20140326, end: 20140326

REACTIONS (2)
  - Urticaria [None]
  - Dermatitis bullous [None]
